FAERS Safety Report 5626291-7 (Version None)
Quarter: 2008Q1

REPORT INFORMATION
  Report Type: 
  Country: None (occurrence: None)
  Receive Date: 20080207
  Receipt Date: 20080117
  Transmission Date: 20080703
  Serious: Yes (Death)
  Sender: FDA-Public Use
  Company Number: B0495569A

PATIENT
  Age: 19 Year
  Sex: Female

DRUGS (1)
  1. SODIUM FLUORIDE TOOTHPASTE (SODIUM FLUORIDE) [Suspect]
     Indication: DRUG USE FOR UNKNOWN INDICATION
     Dosage: DENTAL

REACTIONS (16)
  - ANAPHYLACTIC REACTION [None]
  - ANAPHYLACTIC SHOCK [None]
  - ASTHMA [None]
  - BRONCHIAL SECRETION RETENTION [None]
  - FALL [None]
  - FEELING OF BODY TEMPERATURE CHANGE [None]
  - GINGIVAL PAIN [None]
  - LIVER DISORDER [None]
  - LUNG DISORDER [None]
  - LUNG HYPERINFLATION [None]
  - MALAISE [None]
  - PALLOR [None]
  - PLEURAL HAEMORRHAGE [None]
  - PULMONARY OEDEMA [None]
  - TOOTHACHE [None]
  - TRYPTASE INCREASED [None]
